FAERS Safety Report 13701940 (Version 1)
Quarter: 2017Q2

REPORT INFORMATION
  Report Type: Spontaneous
  Country: US (occurrence: US)
  Receive Date: 20170629
  Receipt Date: 20170629
  Transmission Date: 20170830
  Serious: No
  Sender: FDA-Public Use
  Company Number: US-IPSEN BIOPHARMACEUTICALS, INC.-2014-6487

PATIENT
  Sex: Male
  Weight: 60 kg

DRUGS (3)
  1. INCRELEX [Suspect]
     Active Substance: MECASERMIN
     Indication: DWARFISM
     Dosage: NOT REPORTED
     Route: 058
     Dates: start: 2014
  2. INCRELEX [Suspect]
     Active Substance: MECASERMIN
     Indication: PRODUCT USE IN UNAPPROVED INDICATION
  3. INCRELEX [Suspect]
     Active Substance: MECASERMIN
     Indication: HYPERPITUITARISM

REACTIONS (1)
  - Viral upper respiratory tract infection [Unknown]

NARRATIVE: CASE EVENT DATE: 2014
